FAERS Safety Report 7381887-X (Version None)
Quarter: 2011Q1

REPORT INFORMATION
  Report Type: 
  Country: None (occurrence: None)
  Receive Date: 20110324
  Receipt Date: 20110324
  Transmission Date: 20110831
  Serious: No
  Sender: FDA-Public Use
  Company Number: None

PATIENT
  Sex: Female
  Weight: 59.1944 kg

DRUGS (1)
  1. MAXALT [Suspect]
     Indication: MIGRAINE
     Dates: start: 20110214

REACTIONS (2)
  - THROAT TIGHTNESS [None]
  - LETHARGY [None]
